FAERS Safety Report 6030380-5 (Version None)
Quarter: 2009Q1

REPORT INFORMATION
  Report Type: 
  Country: None (occurrence: None)
  Receive Date: 20090107
  Receipt Date: 20080808
  Transmission Date: 20090719
  Serious: No
  Sender: FDA-Public Use
  Company Number: US-BAYER-200813344BCC

PATIENT
  Age: 16 Year
  Sex: Female
  Weight: 52 kg

DRUGS (2)
  1. MIDOL [Suspect]
     Indication: MUSCLE SPASMS
     Dosage: AS USED: 44O MG  UNIT DOSE: 220 MG
     Route: 048
     Dates: start: 20080807
  2. MIDOL [Suspect]
     Dosage: TOTAL DAILY DOSE: 220 MG  UNIT DOSE: 220 MG
     Route: 048
     Dates: start: 20080808

REACTIONS (1)
  - MUSCLE SPASMS [None]
